FAERS Safety Report 9097133 (Version 3)
Quarter: 2014Q2

REPORT INFORMATION
  Report Type: Spontaneous
  Country: IT (occurrence: IT)
  Receive Date: 20130212
  Receipt Date: 20140408
  Transmission Date: 20141212
  Serious: Yes (Hospitalization, Other)
  Sender: FDA-Public Use
  Company Number: IT-009507513-1212ITA009406

PATIENT
  Age: 34 Year
  Sex: Female
  Weight: 68 kg

DRUGS (2)
  1. NUVARING [Suspect]
     Indication: CONTRACEPTION
     Dosage: CYCLICAL
     Route: 067
     Dates: start: 20121025, end: 20121115
  2. NUVARING [Suspect]
     Dosage: CYCLICAL
     Route: 067
     Dates: start: 20121122, end: 20121213

REACTIONS (5)
  - Abortion induced [Unknown]
  - Unintended pregnancy [Unknown]
  - Amenorrhoea [Unknown]
  - Amenorrhoea [Unknown]
  - Drug ineffective [Unknown]
